FAERS Safety Report 7961013-6 (Version None)
Quarter: 2011Q4

REPORT INFORMATION
  Report Type: 
  Country: None (occurrence: None)
  Receive Date: 20111207
  Receipt Date: 20111205
  Transmission Date: 20120403
  Serious: No
  Sender: FDA-Public Use
  Company Number: US-PFIZER INC-2011296506

PATIENT
  Sex: Female
  Weight: 97.506 kg

DRUGS (6)
  1. CELECOXIB [Suspect]
     Indication: DEPRESSION
     Dosage: UNK
  2. DEPAKOTE [Suspect]
     Indication: CONVULSION
     Dosage: 500 MG, 2X/DAY
     Dates: start: 20110301
  3. GEODON [Suspect]
     Indication: BIPOLAR DISORDER
     Dosage: UNK
  4. SEROQUEL [Suspect]
     Indication: SLEEP DISORDER
     Dosage: UNK
  5. BENADRYL [Suspect]
     Indication: SLEEP DISORDER
     Dosage: UNK
  6. CELEXA [Suspect]
     Indication: DEPRESSION
     Dosage: UNK

REACTIONS (1)
  - DRUG SCREEN POSITIVE [None]
